FAERS Safety Report 20838440 (Version 1)
Quarter: 2022Q2

REPORT INFORMATION
  Report Type: Spontaneous
  Country: AU (occurrence: AU)
  Receive Date: 20220517
  Receipt Date: 20220517
  Transmission Date: 20220721
  Serious: Yes (Other)
  Sender: FDA-Public Use
  Company Number: AU-MYLANLABS-2022M1036400

PATIENT
  Age: 21 Year
  Sex: Female

DRUGS (9)
  1. AZATHIOPRINE [Suspect]
     Active Substance: AZATHIOPRINE
     Indication: Colitis ulcerative
     Dosage: UNK
     Route: 065
  2. METHOTREXATE [Suspect]
     Active Substance: METHOTREXATE
     Indication: Colitis ulcerative
     Dosage: 10 MILLIGRAM, QW
     Route: 058
  3. VEDOLIZUMAB [Suspect]
     Active Substance: VEDOLIZUMAB
     Indication: Colitis ulcerative
     Dosage: UNK, EVERY 4 WEEKS (THE PATIENT RECEIVED VEDOLIZUMAB FOUR WEEKLY AND SUBSEQUENTLY DOSE ESCALATED
     Route: 065
  4. OCTREOTIDE [Suspect]
     Active Substance: OCTREOTIDE
     Indication: Gastric mucosal hypertrophy
     Dosage: AUTHOR COMMENT: ^SHE ALSO DEVELOPED SIGNIFICANT ADVERSE REACTIONS TO CETUXIMAB INCLUDING MYALGIAS, R
     Route: 030
  5. INFLIXIMAB [Suspect]
     Active Substance: INFLIXIMAB
     Indication: Colitis ulcerative
     Dosage: BY USING THERAPEUTIC DRUG MONITORING INFLIXIMAB INFUSION DOSING WAS OPTIMIZED (AIMING FOR WEEK 6 LEV
     Route: 065
  6. INFLIXIMAB [Suspect]
     Active Substance: INFLIXIMAB
     Dosage: 10 MILLIGRAM/KILOGRAM, BIWEEKLY (
     Route: 065
  7. INFLIXIMAB [Suspect]
     Active Substance: INFLIXIMAB
     Dosage: 10 MILLIGRAM/KILOGRAM, EVERY 4 WEEKS (SERUM INFLIXIMAB LEVELS STABILISED AT 10MG/L ON FOUR WEEKLY (1
     Route: 065
  8. MESALAMINE [Concomitant]
     Active Substance: MESALAMINE
     Indication: Colitis ulcerative
     Dosage: THE PATIENT RECEIVED ORAL MESALAZINE GRANULES
     Route: 048
  9. TOFACITINIB [Concomitant]
     Active Substance: TOFACITINIB
     Indication: Colitis ulcerative
     Dosage: 10 MILLIGRAM, BID
     Route: 065

REACTIONS (1)
  - Drug ineffective [Unknown]
